FAERS Safety Report 7053604-4 (Version None)
Quarter: 2010Q4

REPORT INFORMATION
  Report Type: 
  Country: None (occurrence: None)
  Receive Date: 20101020
  Receipt Date: 20101012
  Transmission Date: 20110411
  Serious: Yes (Hospitalization)
  Sender: FDA-Public Use
  Company Number: JP-ASTRAZENECA-2010SE48693

PATIENT
  Sex: Male

DRUGS (2)
  1. BLOPRESS [Suspect]
     Route: 048
     Dates: start: 20100101, end: 20100724
  2. ZOCOR [Suspect]
     Route: 065
     Dates: start: 20100101, end: 20100724

REACTIONS (1)
  - PANCREATITIS ACUTE [None]
